FAERS Safety Report 6178768-6 (Version None)
Quarter: 2009Q2

REPORT INFORMATION
  Report Type: 
  Country: None (occurrence: None)
  Receive Date: 20090504
  Receipt Date: 20081201
  Transmission Date: 20091009
  Serious: No
  Sender: FDA-Public Use
  Company Number: US-ALEXION-A200800385

PATIENT

DRUGS (4)
  1. SOLIRIS [Suspect]
     Indication: PAROXYSMAL NOCTURNAL HAEMOGLOBINURIA
     Dosage: UNK, UNK
  2. WELLBUTRIN [Concomitant]
  3. PEPCID [Concomitant]
  4. FOLIC ACID [Concomitant]

REACTIONS (1)
  - RASH PRURITIC [None]
